FAERS Safety Report 25261140 (Version 1)
Quarter: 2025Q2

REPORT INFORMATION
  Report Type: Spontaneous
  Country: US (occurrence: US)
  Receive Date: 20250501
  Receipt Date: 20250501
  Transmission Date: 20250716
  Serious: No
  Sender: PFIZER
  Company Number: US-PFIZER INC-PV202500051305

PATIENT
  Age: 71 Year
  Sex: Male

DRUGS (2)
  1. TYGACIL [Suspect]
     Active Substance: TIGECYCLINE
     Indication: Mycobacterium abscessus infection
  2. TYGACIL [Suspect]
     Active Substance: TIGECYCLINE
     Indication: Abdominal abscess

REACTIONS (2)
  - Diarrhoea [Unknown]
  - Drug intolerance [Unknown]
